FAERS Safety Report 25707273 (Version 1)
Quarter: 2025Q3

REPORT INFORMATION
  Report Type: Spontaneous
  Country: US (occurrence: None)
  Receive Date: 20250820
  Receipt Date: 20250820
  Transmission Date: 20251020
  Serious: Yes (Other)
  Sender: FDA-CTU
  Company Number: None

PATIENT
  Sex: Female

DRUGS (3)
  1. RINVOQ [Suspect]
     Active Substance: UPADACITINIB
     Indication: Ankylosing spondylitis
     Dates: start: 20230307
  2. MAGNESIUM TAB 250MG [Concomitant]
  3. METHIMAZOLE TAB 5MG [Concomitant]

REACTIONS (2)
  - Arthritis [None]
  - Loss of personal independence in daily activities [None]
